FAERS Safety Report 10538111 (Version 1)
Quarter: 2014Q4

REPORT INFORMATION
  Report Type: Spontaneous
  Country: US (occurrence: None)
  Receive Date: 20141022
  Receipt Date: 20141022
  Transmission Date: 20150529
  Serious: Yes (Hospitalization)
  Sender: FDA-Public Use
  Company Number: None

PATIENT
  Age: 56 Year
  Sex: Female
  Weight: 92.2 kg

DRUGS (12)
  1. ONDANSETRON [Concomitant]
     Active Substance: ONDANSETRON
  2. NEULASTA [Suspect]
     Active Substance: PEGFILGRASTIM
     Indication: NEUTROPENIA
     Dosage: 6MG   EVERY 14 DAYS  SUBCUTANEOUS
     Route: 058
     Dates: start: 20141001, end: 20141001
  3. PALONOSETRON [Concomitant]
     Active Substance: PALONOSETRON
  4. FOSAPREPITANT [Concomitant]
     Active Substance: FOSAPREPITANT
  5. DOXORUBICIN [Concomitant]
     Active Substance: DOXORUBICIN
  6. VITAMIN D [Concomitant]
     Active Substance: CHOLECALCIFEROL
  7. LORATADINE. [Concomitant]
     Active Substance: LORATADINE
  8. NEULASTA [Suspect]
     Active Substance: PEGFILGRASTIM
     Dosage: 6MG   EVERY 14 DAYS  SUBCUTANEOUS
     Route: 058
     Dates: start: 20141001, end: 20141001
  9. DEXAMETHASONE. [Concomitant]
     Active Substance: DEXAMETHASONE
  10. LORAZEPAM. [Concomitant]
     Active Substance: LORAZEPAM
  11. CYCLOPHOSPHAMIDE. [Concomitant]
     Active Substance: CYCLOPHOSPHAMIDE
  12. MULTIVITAMIN [Concomitant]
     Active Substance: VITAMINS

REACTIONS (3)
  - Dyspnoea [None]
  - Anxiety [None]
  - Chest pain [None]

NARRATIVE: CASE EVENT DATE: 20141001
